FAERS Safety Report 9613723 (Version 1)
Quarter: 2013Q4

REPORT INFORMATION
  Report Type: Spontaneous
  Country: US (occurrence: US)
  Receive Date: 20131010
  Receipt Date: 20131010
  Transmission Date: 20140711
  Serious: Yes (Other)
  Sender: FDA-Public Use
  Company Number: US-UCBSA-099337

PATIENT
  Sex: Female

DRUGS (2)
  1. LORTAB [Suspect]
     Indication: WAGNER^S DISEASE
     Dosage: DOSE: UNKNWON
  2. LORTAB [Suspect]
     Indication: WAGNER^S DISEASE
     Dosage: DOSE HIGHER THAN 10 MG STRENGTH

REACTIONS (2)
  - Bone neoplasm [Unknown]
  - Fall [Unknown]
